FAERS Safety Report 10916913 (Version 2)
Quarter: 2015Q2

REPORT INFORMATION
  Report Type: Spontaneous
  Country: US (occurrence: US)
  Receive Date: 20150316
  Receipt Date: 20150524
  Transmission Date: 20150821
  Serious: No
  Sender: FDA-Public Use
  Company Number: US-JNJFOC-20140303354

PATIENT
  Sex: Male

DRUGS (3)
  1. TREBANANIB [Suspect]
     Active Substance: TREBANANIB
     Indication: PROSTATE CANCER METASTATIC
     Dosage: 15MG/KG TO 30MG/KG ON DAYS 1, 8, 15, AND 22 EVERY 28-DAYS
     Route: 042
  2. PREDNISONE. [Suspect]
     Active Substance: PREDNISONE
     Indication: PROSTATE CANCER METASTATIC
     Route: 065
  3. ABIRATERONE ACETATE [Suspect]
     Active Substance: ABIRATERONE ACETATE
     Indication: PROSTATE CANCER METASTATIC
     Route: 048

REACTIONS (8)
  - Oedema peripheral [Unknown]
  - Weight increased [Unknown]
  - Gastrointestinal disorder [Unknown]
  - Hypertension [Unknown]
  - Confusional state [Unknown]
  - Insomnia [Unknown]
  - Fatigue [Unknown]
  - Hyperglycaemia [Unknown]
